FAERS Safety Report 6504226-2 (Version None)
Quarter: 2009Q4

REPORT INFORMATION
  Report Type: 
  Country: None (occurrence: None)
  Receive Date: 20091217
  Receipt Date: 20091207
  Transmission Date: 20100525
  Serious: Yes (Hospitalization)
  Sender: FDA-Public Use
  Company Number: DE-SANOFI-AVENTIS-2009SA008712

PATIENT
  Age: 32 Year

DRUGS (8)
  1. OXALIPLATIN [Suspect]
     Indication: COLON CANCER
     Route: 041
     Dates: start: 20070402, end: 20070402
  2. OXALIPLATIN [Suspect]
     Route: 041
     Dates: start: 20070611, end: 20070611
  3. FLUOROURACIL [Suspect]
     Indication: COLON CANCER
     Route: 041
     Dates: start: 20070402, end: 20070402
  4. FLUOROURACIL [Suspect]
     Route: 041
     Dates: start: 20070611, end: 20070611
  5. FOLINIC ACID [Suspect]
     Indication: COLON CANCER
     Route: 041
     Dates: start: 20070402, end: 20070402
  6. FOLINIC ACID [Suspect]
     Route: 041
     Dates: start: 20070611, end: 20070611
  7. CETUXIMAB [Suspect]
     Indication: COLON CANCER
     Route: 041
     Dates: start: 20070402, end: 20070402
  8. CETUXIMAB [Suspect]
     Route: 041
     Dates: start: 20070611, end: 20070611

REACTIONS (4)
  - HAEMATURIA [None]
  - NEPHROLITHIASIS [None]
  - RENAL COLIC [None]
  - URETHRAL PERFORATION [None]
